FAERS Safety Report 13377464 (Version 2)
Quarter: 2017Q2

REPORT INFORMATION
  Report Type: Spontaneous
  Country: IT (occurrence: IT)
  Receive Date: 20170328
  Receipt Date: 20170407
  Transmission Date: 20170830
  Serious: Yes (Hospitalization, Other)
  Sender: FDA-Public Use
  Company Number: IT-ASTRAZENECA-2017SE29957

PATIENT
  Age: 19412 Day
  Sex: Female

DRUGS (2)
  1. QUETIAPINE. [Suspect]
     Active Substance: QUETIAPINE
     Indication: DRUG USE DISORDER
     Dosage: 9.0DF ONCE/SINGLE ADMINISTRATION
     Route: 048
     Dates: start: 20170301, end: 20170301
  2. QUETIAPINE. [Suspect]
     Active Substance: QUETIAPINE
     Indication: DEPRESSION
     Dosage: 9.0DF ONCE/SINGLE ADMINISTRATION
     Route: 048
     Dates: start: 20170301, end: 20170301

REACTIONS (2)
  - Depressed level of consciousness [Recovered/Resolved]
  - Drug use disorder [Unknown]

NARRATIVE: CASE EVENT DATE: 20170301
